FAERS Safety Report 4776631-6 (Version None)
Quarter: 2005Q3

REPORT INFORMATION
  Report Type: 
  Country: None (occurrence: None)
  Receive Date: 20050923
  Receipt Date: 20050912
  Transmission Date: 20060218
  Serious: Yes (Other)
  Sender: FDA-Public Use
  Company Number: 2005UW13712

PATIENT
  Age: 46 Year
  Sex: Female

DRUGS (4)
  1. CRESTOR [Suspect]
     Indication: BLOOD CHOLESTEROL INCREASED
     Route: 048
     Dates: start: 20050908
  2. COUMADIN [Concomitant]
     Indication: DEEP VEIN THROMBOSIS
  3. ASPIRIN [Concomitant]
     Indication: PAIN IN EXTREMITY
  4. DYAZIDE [Concomitant]
     Indication: OEDEMA

REACTIONS (1)
  - PHLEBITIS [None]
